FAERS Safety Report 11137161 (Version 2)
Quarter: 2015Q2

REPORT INFORMATION
  Report Type: Spontaneous
  Country: US (occurrence: US)
  Receive Date: 20150526
  Receipt Date: 20150601
  Transmission Date: 20150821
  Serious: Yes (Other)
  Sender: FDA-Public Use
  Company Number: US-AUROBINDO-AUR-APL-2015-04485

PATIENT
  Age: 55 Year
  Sex: Male

DRUGS (4)
  1. CITALOPRAM [Suspect]
     Active Substance: CITALOPRAM HYDROBROMIDE
     Indication: PRODUCT USED FOR UNKNOWN INDICATION
     Dosage: UNK
     Route: 065
  2. LISINOPRIL. [Concomitant]
     Active Substance: LISINOPRIL
     Indication: PRODUCT USED FOR UNKNOWN INDICATION
     Dosage: UNK
     Route: 065
  3. BENZOYL PEROXIDE. [Concomitant]
     Active Substance: BENZOYL PEROXIDE
     Indication: PRODUCT USED FOR UNKNOWN INDICATION
     Dosage: UNK
     Route: 065
  4. KAVAIN PLUS [Interacting]
     Active Substance: KAWAIN\PIPER METHYSTICUM ROOT
     Indication: PRODUCT USED FOR UNKNOWN INDICATION
     Dosage: UNK
     Route: 060

REACTIONS (11)
  - Milia [Recovered/Resolved]
  - Macule [Recovered/Resolved]
  - Rash [Recovered/Resolved]
  - Dermatitis acneiform [Recovered/Resolved]
  - Folliculitis [Recovered/Resolved]
  - Drug interaction [Unknown]
  - Papule [Recovered/Resolved]
  - Dermatitis contact [Recovered/Resolved]
  - Rash pruritic [Recovered/Resolved]
  - Flushing [Unknown]
  - Seborrhoeic dermatitis [Recovered/Resolved]
